FAERS Safety Report 13479708 (Version 7)
Quarter: 2022Q1

REPORT INFORMATION
  Report Type: Report from Study
  Country: CZ (occurrence: CZ)
  Receive Date: 20170425
  Receipt Date: 20220210
  Transmission Date: 20220423
  Serious: Yes (Death, Life-Threatening)
  Sender: FDA-Public Use
  Company Number: CZ-AMGEN-CZECT2017063224

PATIENT
  Age: 69 Year
  Sex: Male
  Weight: 87 kg

DRUGS (8)
  1. EVOLOCUMAB [Suspect]
     Active Substance: EVOLOCUMAB
     Indication: Dyslipidaemia
     Dosage: 1 MILLILITER
     Route: 058
     Dates: start: 20160902, end: 20170317
  2. ATORVASTATIN [Concomitant]
     Active Substance: ATORVASTATIN
     Indication: Dyslipidaemia
     Dosage: 40 MILLIGRAM
     Dates: start: 20110112
  3. ASPIRIN [Concomitant]
     Active Substance: ASPIRIN
     Dosage: 100 MILLIGRAM
     Dates: start: 20110629, end: 20170322
  4. INSULIN NOS [Concomitant]
     Active Substance: INSULIN NOS
     Dosage: 24 UNK
     Dates: start: 20110629, end: 20170325
  5. PANTOPRAZOLE [Concomitant]
     Active Substance: PANTOPRAZOLE
     Dosage: 40 MILLIGRAM
     Dates: start: 20161226, end: 20170325
  6. INDAPAMIDE\PERINDOPRIL ARGININE [Concomitant]
     Active Substance: INDAPAMIDE\PERINDOPRIL ARGININE
     Dosage: 10 MILLIGRAM
     Dates: start: 20110629, end: 20170325
  7. BISOPROLOL [Concomitant]
     Active Substance: BISOPROLOL
     Dosage: 2.5 MILLIGRAM
     Dates: start: 20110629, end: 20170325
  8. METFORMIN [Concomitant]
     Active Substance: METFORMIN HYDROCHLORIDE
     Dosage: 1000 MILLIGRAM
     Dates: start: 20110629, end: 20170325

REACTIONS (1)
  - Sudden death [Fatal]

NARRATIVE: CASE EVENT DATE: 20170326
